FAERS Safety Report 4423128-9 (Version None)
Quarter: 2004Q3

REPORT INFORMATION
  Report Type: 
  Country: None (occurrence: None)
  Receive Date: 20040811
  Receipt Date: 20040803
  Transmission Date: 20050211
  Serious: Yes (Hospitalization)
  Sender: FDA-Public Use
  Company Number: US-MERCK-0408USA00255

PATIENT
  Age: 85 Year
  Sex: Female

DRUGS (10)
  1. FOSAMAX [Suspect]
     Indication: OSTEOPOROSIS
     Route: 048
     Dates: start: 20040701, end: 20040701
  2. FOSAMAX [Suspect]
     Route: 048
  3. XANAX [Concomitant]
     Route: 065
  4. LIPITOR [Concomitant]
     Route: 065
  5. DIGITEK [Concomitant]
     Route: 065
  6. LEXAPRO [Concomitant]
     Route: 065
  7. PRILOSEC [Concomitant]
     Route: 065
  8. EVISTA [Concomitant]
     Route: 065
  9. DIOVAN [Concomitant]
     Route: 065
  10. COUMADIN [Concomitant]
     Route: 065

REACTIONS (5)
  - BRONCHIAL IRRITATION [None]
  - COUGH [None]
  - DEPRESSION [None]
  - MEDICATION ERROR [None]
  - OESOPHAGEAL DISCOMFORT [None]
